FAERS Safety Report 5226354-4 (Version None)
Quarter: 2007Q1

REPORT INFORMATION
  Report Type: 
  Country: None (occurrence: None)
  Receive Date: 20070129
  Receipt Date: 20070119
  Transmission Date: 20070707
  Serious: Yes (Hospitalization, Other)
  Sender: FDA-Public Use
  Company Number: S06-USA-05213-01

PATIENT
  Age: 90 Year
  Sex: Female

DRUGS (13)
  1. LEXAPRO [Suspect]
     Indication: DEPRESSION
     Dosage: 20 MG QD PO
     Route: 048
     Dates: start: 20050601, end: 20050722
  2. LEVOXYL [Concomitant]
  3. CAPTOPRIL [Concomitant]
  4. METOPROLOL SUCCINATE [Concomitant]
  5. ASPIRIN [Concomitant]
  6. LASIX [Concomitant]
  7. POTASSIUM ACETATE [Concomitant]
  8. NORVASC [Concomitant]
  9. GLUCOPHAGE [Concomitant]
  10. GLUCOTROL [Concomitant]
  11. TRAZODONE HCL [Concomitant]
  12. COLACE (DOCUSATE SODIUM) [Concomitant]
  13. HALDOL SOLUTAB [Concomitant]

REACTIONS (17)
  - BLOOD PRESSURE DIASTOLIC DECREASED [None]
  - BRADYCARDIA [None]
  - CARDIAC FAILURE CONGESTIVE [None]
  - DEHYDRATION [None]
  - DIALYSIS [None]
  - FALL [None]
  - HAEMATOCRIT DECREASED [None]
  - HAEMATOMA [None]
  - HAEMOGLOBIN DECREASED [None]
  - HEAD INJURY [None]
  - HYPERKALAEMIA [None]
  - HYPERPHOSPHATAEMIA [None]
  - HYPOGLYCAEMIA [None]
  - LACERATION [None]
  - RENAL FAILURE [None]
  - RESPIRATORY RATE INCREASED [None]
  - SOMNOLENCE [None]
